FAERS Safety Report 9277334 (Version 1)
Quarter: 2013Q2

REPORT INFORMATION
  Report Type: Spontaneous
  Country: US (occurrence: None)
  Receive Date: 20130503
  Receipt Date: 20130503
  Transmission Date: 20140414
  Serious: Yes (Hospitalization)
  Sender: FDA-Public Use
  Company Number: None

PATIENT
  Age: 69 Year
  Sex: Male

DRUGS (1)
  1. STIVARGA 40 MG BAYER [Suspect]
     Indication: COLON CANCER
     Dosage: DAILY 1-21
     Route: 048
     Dates: start: 20130314, end: 201304

REACTIONS (4)
  - Dyspnoea [None]
  - Abdominal pain [None]
  - Fatigue [None]
  - Weight decreased [None]
